FAERS Safety Report 8819916 (Version 4)
Quarter: 2014Q3

REPORT INFORMATION
  Report Type: Spontaneous
  Country: US (occurrence: US)
  Receive Date: 20121001
  Receipt Date: 20140818
  Transmission Date: 20150326
  Serious: Yes (Hospitalization)
  Sender: FDA-Public Use
  Company Number: US-009507513-2012SP024525

PATIENT
  Sex: Female
  Weight: 58.5 kg

DRUGS (1)
  1. NUVARING [Suspect]
     Active Substance: ETHINYL ESTRADIOL\ETONOGESTREL
     Indication: PRODUCT USED FOR UNKNOWN INDICATION
     Dosage: 1 RING FOR 3 WEEKS, THEN REMOVE (AFTER 7 DAYS REPLACE WITH NEW RING)
     Route: 067
     Dates: start: 20100507, end: 201009

REACTIONS (10)
  - Venous stent insertion [Unknown]
  - Thrombolysis [Unknown]
  - Vena cava filter insertion [Unknown]
  - General physical condition abnormal [Unknown]
  - Thrombolysis [Unknown]
  - Device embolisation [Unknown]
  - Uterine leiomyoma [Unknown]
  - Angioplasty [Unknown]
  - Deep vein thrombosis [Not Recovered/Not Resolved]
  - Renal cyst [Unknown]

NARRATIVE: CASE EVENT DATE: 201009
